FAERS Safety Report 10072774 (Version 5)
Quarter: 2014Q3

REPORT INFORMATION
  Report Type: Spontaneous
  Country: US (occurrence: US)
  Receive Date: 20140411
  Receipt Date: 20140828
  Transmission Date: 20150326
  Serious: Yes (Other)
  Sender: FDA-Public Use
  Company Number: US-PFIZER INC-2014101986

PATIENT
  Age: 18 Year
  Sex: Male
  Weight: 68.03 kg

DRUGS (2)
  1. EFFEXOR [Suspect]
     Active Substance: VENLAFAXINE HYDROCHLORIDE
     Indication: ANXIETY
     Dosage: 75 MG, UNK
  2. EFFEXOR [Suspect]
     Active Substance: VENLAFAXINE HYDROCHLORIDE
     Indication: SOCIAL PHOBIA
     Dosage: UNK
     Dates: start: 2014

REACTIONS (8)
  - Erectile dysfunction [Unknown]
  - Suicidal ideation [Unknown]
  - Anxiety [Unknown]
  - Sexual dysfunction [Unknown]
  - Quality of life decreased [Unknown]
  - Drug withdrawal syndrome [Unknown]
  - Muscular weakness [Unknown]
  - Drug ineffective [Unknown]
